FAERS Safety Report 11175881 (Version 2)
Quarter: 2015Q2

REPORT INFORMATION
  Report Type: Spontaneous
  Country: JP (occurrence: JP)
  Receive Date: 20150609
  Receipt Date: 20150610
  Transmission Date: 20150821
  Serious: Yes (Hospitalization)
  Sender: FDA-Public Use
  Company Number: JP-DSJP-DSJ-2015-117777

PATIENT

DRUGS (6)
  1. BAYASPIRIN [Suspect]
     Active Substance: ASPIRIN
     Dosage: UNK
     Route: 048
  2. URSO [Suspect]
     Active Substance: URSODIOL
     Dosage: UNK
     Route: 048
  3. TRICOR                             /00090101/ [Suspect]
     Active Substance: ADENOSINE
     Dosage: UNK
     Route: 048
  4. OLMETEC [Suspect]
     Active Substance: OLMESARTAN MEDOXOMIL
     Indication: PRODUCT USED FOR UNKNOWN INDICATION
     Dosage: UNK
     Route: 048
  5. EQUA [Suspect]
     Active Substance: VILDAGLIPTIN
     Dosage: UNK
     Route: 048
  6. ZETIA [Suspect]
     Active Substance: EZETIMIBE
     Dosage: 10MG/DAY
     Route: 048

REACTIONS (2)
  - Adverse event [Unknown]
  - Neutrophil count decreased [Unknown]
